FAERS Safety Report 18139991 (Version 2)
Quarter: 2020Q3

REPORT INFORMATION
  Report Type: Spontaneous
  Country: IN (occurrence: IN)
  Receive Date: 20200812
  Receipt Date: 20200819
  Transmission Date: 20201103
  Serious: Yes (Hospitalization, Other)
  Sender: FDA-Public Use
  Company Number: IN-GLAXOSMITHKLINE-IN2020GSK154236

PATIENT
  Age: 60 Year
  Sex: Male

DRUGS (1)
  1. DICLOFENAC [Suspect]
     Active Substance: DICLOFENAC
     Indication: PAIN
     Dosage: 2 ML
     Route: 030

REACTIONS (12)
  - Injection site pain [Unknown]
  - Pallor [Unknown]
  - Embolia cutis medicamentosa [Unknown]
  - Skin discolouration [Recovering/Resolving]
  - Gait disturbance [Unknown]
  - Swelling [Unknown]
  - Musculoskeletal pain [Unknown]
  - Injection site erythema [Recovering/Resolving]
  - Necrosis [Unknown]
  - Injection site inflammation [Unknown]
  - Pain [Unknown]
  - Red blood cell sedimentation rate increased [Unknown]
